FAERS Safety Report 23687402 (Version 1)
Quarter: 2024Q1

REPORT INFORMATION
  Report Type: Spontaneous
  Country: CH (occurrence: None)
  Receive Date: 20240329
  Receipt Date: 20240329
  Transmission Date: 20240410
  Serious: Yes (Hospitalization)
  Sender: FDA-Public Use
  Company Number: 2024A072641

PATIENT
  Age: 47 Year
  Sex: Female

DRUGS (17)
  1. QUETIAPINE [Suspect]
     Active Substance: QUETIAPINE
     Dosage: 1 DAY UNDETERMINED QUANTITIES
     Route: 048
     Dates: start: 20231210, end: 20231210
  2. QUETIAPINE [Suspect]
     Active Substance: QUETIAPINE
     Dosage: MORNING AND EVENING
     Route: 048
  3. QUETIAPINE [Suspect]
     Active Substance: QUETIAPINE
     Dosage: AT BEDTIME
     Route: 048
  4. RIVOTRIL [Suspect]
     Active Substance: CLONAZEPAM
     Dosage: UNDETERMINED QUANTITIES
     Route: 048
     Dates: start: 20231210, end: 20231210
  5. RIVOTRIL [Suspect]
     Active Substance: CLONAZEPAM
     Dosage: BID, IN EVENING
  6. FLURAZEPAM HYDROCHLORIDE [Suspect]
     Active Substance: FLURAZEPAM HYDROCHLORIDE
     Dosage: UNDETERMINED QUANTITIES 1 DAY
     Dates: start: 20231210, end: 20231210
  7. FLURAZEPAM HYDROCHLORIDE [Suspect]
     Active Substance: FLURAZEPAM HYDROCHLORIDE
     Dosage: AT BEDTIME
  8. VENLAFAXINE [Concomitant]
     Active Substance: VENLAFAXINE HYDROCHLORIDE
     Dosage: THE MORNING
  9. VENLAFAXINE [Concomitant]
     Active Substance: VENLAFAXINE HYDROCHLORIDE
     Dosage: THE EVENING
  10. EUTHYROX [Concomitant]
     Active Substance: LEVOTHYROXINE SODIUM
     Dosage: 75 MICROGRAMS PER INHALATION FROM MONDAY TO FRIDAY
  11. EUTHYROX [Concomitant]
     Active Substance: LEVOTHYROXINE SODIUM
     Dosage: 100 MICROGRAMS PER INHALATION THE WEEKEND
  12. EZETIMIBE [Concomitant]
     Active Substance: EZETIMIBE
  13. ROSUVASTATIN [Concomitant]
     Active Substance: ROSUVASTATIN
  14. METFORMIN [Concomitant]
     Active Substance: METFORMIN HYDROCHLORIDE
     Dosage: 12 - EVERY HOUR
  15. OZEMPIC [Concomitant]
     Active Substance: SEMAGLUTIDE
  16. MIDODRINE HYDROCHLORIDE [Concomitant]
     Active Substance: MIDODRINE HYDROCHLORIDE
  17. PREGABALIN [Concomitant]
     Active Substance: PREGABALIN

REACTIONS (5)
  - Intentional overdose [Recovered/Resolved]
  - Drug interaction [Recovered/Resolved]
  - Depressed level of consciousness [Recovered/Resolved]
  - Oxygen saturation decreased [Recovered/Resolved]
  - Hypotension [Recovered/Resolved]

NARRATIVE: CASE EVENT DATE: 20231210
